FAERS Safety Report 24945066 (Version 1)
Quarter: 2025Q1

REPORT INFORMATION
  Report Type: Spontaneous
  Country: US (occurrence: US)
  Receive Date: 20250208
  Receipt Date: 20250208
  Transmission Date: 20250409
  Serious: No
  Sender: TARO
  Company Number: US-TARO PHARMACEUTICALS USA INC.-2025TAR00047

PATIENT

DRUGS (2)
  1. ADAPALENE [Suspect]
     Active Substance: ADAPALENE
     Indication: Acne
     Dosage: UNK UNK, 1/WEEK, , ON FACE, PEA SIZE
     Route: 061
     Dates: start: 202408, end: 20241228
  2. ADAPALENE [Suspect]
     Active Substance: ADAPALENE
     Indication: Rash

REACTIONS (1)
  - Drug ineffective [Unknown]
